FAERS Safety Report 17026663 (Version 1)
Quarter: 2019Q4

REPORT INFORMATION
  Report Type: Spontaneous
  Country: US (occurrence: US)
  Receive Date: 20191113
  Receipt Date: 20191113
  Transmission Date: 20200122
  Serious: Yes (Other)
  Sender: FDA-Public Use
  Company Number: US-ROCHE-2463912

PATIENT
  Age: 57 Year
  Sex: Female

DRUGS (1)
  1. RITUXAN [Suspect]
     Active Substance: RITUXIMAB
     Indication: B-CELL LYMPHOMA
     Route: 065
     Dates: end: 2019

REACTIONS (4)
  - Malignant neoplasm progression [Unknown]
  - Night sweats [Unknown]
  - Hernia [Unknown]
  - Weight decreased [Unknown]
